FAERS Safety Report 6005696 (Version 3)
Quarter: 2014Q3

REPORT INFORMATION
  Report Type: Spontaneous
  Country: JP (occurrence: JP)
  Receive Date: 20060316
  Receipt Date: 20140922
  Transmission Date: 20150326
  Serious: Yes (Hospitalization)
  Sender: FDA-Public Use
  Company Number: PHBS2006JP03774

PATIENT
  Age: 36 Year
  Sex: Female

DRUGS (5)
  1. PREDNISOLONE. [Suspect]
     Active Substance: PREDNISOLONE
     Indication: PAIN
  2. DICLOFENAC [Suspect]
     Active Substance: DICLOFENAC
     Indication: PAIN
  3. PREDNISOLONE. [Suspect]
     Active Substance: PREDNISOLONE
     Indication: ERYTHEMA NODOSUM
     Dosage: 20 MG, QD
     Route: 048
  4. DICLOFENAC [Suspect]
     Active Substance: DICLOFENAC
     Indication: ERYTHEMA NODOSUM
     Dosage: 75 MG, QD
     Route: 048
  5. GABAPENTIN. [Concomitant]
     Active Substance: GABAPENTIN

REACTIONS (8)
  - Peritonitis [Recovering/Resolving]
  - Large intestinal ulcer perforation [Recovering/Resolving]
  - Abdominal rebound tenderness [Recovering/Resolving]
  - Abdominal distension [Recovering/Resolving]
  - Abdominal rigidity [Recovering/Resolving]
  - Abdominal pain [Recovering/Resolving]
  - Vasculitis gastrointestinal [Recovering/Resolving]
  - Ascites [Recovering/Resolving]
